FAERS Safety Report 18374881 (Version 2)
Quarter: 2022Q1

REPORT INFORMATION
  Report Type: Spontaneous
  Country: US (occurrence: US)
  Receive Date: 20201013
  Receipt Date: 20220201
  Transmission Date: 20220423
  Serious: Yes (Hospitalization, Other)
  Sender: FDA-Public Use
  Company Number: US-ASTRAZENECA-2020SE89636

PATIENT
  Age: 13 Year
  Sex: Female
  Weight: 77 kg

DRUGS (8)
  1. ROSUVASTATIN [Suspect]
     Active Substance: ROSUVASTATIN
     Indication: Dyslipidaemia
     Dosage: 40 MILLIGRAM, QD
     Route: 065
  2. LOVASTATIN [Suspect]
     Active Substance: LOVASTATIN
     Indication: Dyslipidaemia
     Dosage: 40 MILLIGRAM
     Route: 065
  3. METFORMIN [Concomitant]
     Active Substance: METFORMIN HYDROCHLORIDE
     Indication: Glucose tolerance impaired
     Dosage: UNK
     Route: 065
  4. FISH OIL [Concomitant]
     Active Substance: FISH OIL
     Indication: Dyslipidaemia
     Dosage: UNK
     Route: 065
  5. NIACIN [Concomitant]
     Active Substance: NIACIN
     Indication: Dyslipidaemia
     Dosage: UNK
     Route: 065
  6. AMLODIPINE [Concomitant]
     Active Substance: AMLODIPINE BESYLATE
     Indication: Hypertension
     Dosage: UNK
     Route: 065
  7. INSULIN NOS [Concomitant]
     Active Substance: INSULIN NOS
     Indication: Type 2 diabetes mellitus
     Route: 065
  8. SOMATROPIN [Concomitant]
     Active Substance: SOMATROPIN
     Indication: Growth disorder
     Dosage: UNK
     Route: 065

REACTIONS (5)
  - Rhabdomyolysis [Recovered/Resolved]
  - Acute kidney injury [Recovered/Resolved]
  - Hypernatraemia [Unknown]
  - Drug-induced liver injury [Recovering/Resolving]
  - Hyperchloraemia [Unknown]
